FAERS Safety Report 15916045 (Version 2)
Quarter: 2019Q2

REPORT INFORMATION
  Report Type: Spontaneous
  Country: US (occurrence: US)
  Receive Date: 20190204
  Receipt Date: 20190626
  Transmission Date: 20190711
  Serious: No
  Sender: FDA-Public Use
  Company Number: US-ACTELION-A-NJ2019-185225

PATIENT
  Age: 59 Year
  Sex: Female

DRUGS (5)
  1. UPTRAVI [Suspect]
     Active Substance: SELEXIPAG
     Indication: PULMONARY ARTERIAL HYPERTENSION
     Dosage: 200 MCG, BID
     Route: 048
     Dates: start: 20181211
  2. UPTRAVI [Suspect]
     Active Substance: SELEXIPAG
     Dosage: 1000 MCG, QD
     Route: 048
     Dates: start: 20190124
  3. UPTRAVI [Suspect]
     Active Substance: SELEXIPAG
     Dosage: 800 MCG, BID
     Route: 048
     Dates: start: 20181211
  4. UPTRAVI [Suspect]
     Active Substance: SELEXIPAG
     Dosage: 1200 MCG, QD
     Route: 048
     Dates: start: 20190117
  5. OPSUMIT [Suspect]
     Active Substance: MACITENTAN
     Indication: PULMONARY ARTERIAL HYPERTENSION
     Dosage: 10 MG, QD
     Route: 048
     Dates: start: 20170428

REACTIONS (1)
  - Diarrhoea [Recovering/Resolving]

NARRATIVE: CASE EVENT DATE: 20190117
